FAERS Safety Report 16511832 (Version 1)
Quarter: 2019Q3

REPORT INFORMATION
  Report Type: Report from Study
  Country: CN (occurrence: CN)
  Receive Date: 20190702
  Receipt Date: 20190702
  Transmission Date: 20191004
  Serious: Yes (Death, Hospitalization)
  Sender: FDA-Public Use
  Company Number: CN-BAYER-2019-123746

PATIENT

DRUGS (1)
  1. ACARBOSE. [Suspect]
     Active Substance: ACARBOSE

REACTIONS (1)
  - Drug-induced liver injury [Fatal]
